FAERS Safety Report 5141095-X (Version None)
Quarter: 2006Q4

REPORT INFORMATION
  Report Type: 
  Country: None (occurrence: None)
  Receive Date: 20061101
  Receipt Date: 20061018
  Transmission Date: 20070319
  Serious: Yes (Hospitalization, Other)
  Sender: FDA-Public Use
  Company Number: US-ELI_LILLY_AND_COMPANY-US200610003619

PATIENT
  Age: 84 Year
  Sex: Female

DRUGS (6)
  1. ZYPREXA [Suspect]
     Indication: MAJOR DEPRESSION
     Dosage: 5 MG, DAILY (1/D)
     Dates: start: 19980101, end: 20061001
  2. ZYPREXA [Suspect]
     Dosage: 2.5 MG, DAILY (1/D)
     Dates: start: 20061001
  3. CYMBALTA [Suspect]
     Indication: MAJOR DEPRESSION
     Dosage: 20 MG, 2/D
     Dates: start: 20050101, end: 20061001
  4. CYMBALTA [Suspect]
     Dosage: 20 MG, DAILY (1/D)
     Dates: start: 20061001
  5. COGENTIN                                /UNK/ [Concomitant]
  6. AMBIEN [Concomitant]

REACTIONS (4)
  - AGITATION [None]
  - ANXIETY [None]
  - CONFUSIONAL STATE [None]
  - DEMENTIA ALZHEIMER'S TYPE [None]
